FAERS Safety Report 19999819 (Version 1)
Quarter: 2021Q4

REPORT INFORMATION
  Report Type: Spontaneous
  Country: US (occurrence: US)
  Receive Date: 20211026
  Receipt Date: 20211026
  Transmission Date: 20220303
  Serious: Yes (Other)
  Sender: FDA-Public Use
  Company Number: US-NOVARTISPH-NVSC2021US240023

PATIENT
  Age: 59 Year
  Sex: Male

DRUGS (2)
  1. RANITIDINE [Suspect]
     Active Substance: RANITIDINE
     Indication: Dyspepsia
     Dosage: 150 MG, QD
     Route: 065
     Dates: end: 200501
  2. RANITIDINE [Suspect]
     Active Substance: RANITIDINE
     Indication: Dyspepsia
     Dosage: 150 MG, QD
     Route: 065
     Dates: end: 200501

REACTIONS (7)
  - Prostate cancer [Recovering/Resolving]
  - Appendix cancer [Recovering/Resolving]
  - Colorectal cancer stage IV [Recovering/Resolving]
  - Hepatic cancer [Recovering/Resolving]
  - Gastrointestinal carcinoma [Recovering/Resolving]
  - Small intestine carcinoma [Unknown]
  - Incorrect dose administered [Unknown]

NARRATIVE: CASE EVENT DATE: 19980501
